FAERS Safety Report 19920172 (Version 1)
Quarter: 2021Q4

REPORT INFORMATION
  Report Type: Report from Study
  Country: None (occurrence: US)
  Receive Date: 20211005
  Receipt Date: 20211005
  Transmission Date: 20220303
  Serious: Yes (Other)
  Sender: FDA-Public Use
  Company Number: US-ABBVIE-21K-163-4104322-00

PATIENT
  Age: 57 Year
  Sex: Male

DRUGS (5)
  1. HUMIRA [Suspect]
     Active Substance: ADALIMUMAB
     Indication: Ankylosing spondylitis
     Dosage: MISSED DOSES MANY TIMES
     Route: 058
     Dates: start: 2006
  2. HUMIRA [Suspect]
     Active Substance: ADALIMUMAB
     Indication: Fibromyalgia
     Route: 058
     Dates: start: 202103
  3. AMOXICILLIN [Suspect]
     Active Substance: AMOXICILLIN
     Indication: Bronchitis
     Route: 065
  4. INFLUENZA VIRUS VACCINE [Suspect]
     Active Substance: INFLUENZA VIRUS VACCINE
     Indication: Product used for unknown indication
     Route: 065
  5. TETANUS TOXOID ADSORBED (VACCINE) [Suspect]
     Active Substance: CLOSTRIDIUM TETANI TOXOID ANTIGEN (FORMALDEHYDE INACTIVATED)
     Indication: Product used for unknown indication
     Route: 065

REACTIONS (10)
  - Tooth extraction [Unknown]
  - Endodontic procedure [Unknown]
  - Drug clearance increased [Unknown]
  - Tooth infection [Unknown]
  - Bronchitis [Unknown]
  - Ankylosing spondylitis [Recovered/Resolved]
  - Muscle swelling [Recovered/Resolved]
  - Inhibitory drug interaction [Unknown]
  - Therapeutic product effect decreased [Unknown]
  - Pain [Unknown]

NARRATIVE: CASE EVENT DATE: 20210901
